FAERS Safety Report 12750914 (Version 2)
Quarter: 2016Q4

REPORT INFORMATION
  Report Type: Spontaneous
  Country: RU (occurrence: RU)
  Receive Date: 20160916
  Receipt Date: 20161003
  Transmission Date: 20170207
  Serious: Yes (Death, Life-Threatening, Hospitalization, Other)
  Sender: FDA-Public Use
  Company Number: RU-ACTELION-A-CH2016-138229

PATIENT
  Age: 12 Year
  Sex: Male
  Weight: 31 kg

DRUGS (3)
  1. TRACLEER [Suspect]
     Active Substance: BOSENTAN
     Indication: PULMONARY ARTERIAL HYPERTENSION
     Dosage: 62.5 MG, BID
     Route: 048
     Dates: start: 20160204, end: 20160731
  2. TRACLEER [Suspect]
     Active Substance: BOSENTAN
     Dosage: 31.25 MG, BID
     Route: 048
     Dates: start: 20160101, end: 20160130
  3. VEROSPIRONE [Concomitant]

REACTIONS (6)
  - Pulmonary arterial hypertension [Fatal]
  - Right ventricular systolic pressure increased [Fatal]
  - Pulmonary oedema [Fatal]
  - Balloon atrial septostomy [Unknown]
  - Syncope [Fatal]
  - Disease progression [Fatal]

NARRATIVE: CASE EVENT DATE: 20160521
